FAERS Safety Report 4563255-9 (Version None)
Quarter: 2005Q1

REPORT INFORMATION
  Report Type: 
  Country: None (occurrence: None)
  Receive Date: 20050128
  Receipt Date: 20050112
  Transmission Date: 20050727
  Serious: Yes (Other)
  Sender: FDA-Public Use
  Company Number: US-ABBOTT-05P-163-0287038-00

PATIENT
  Sex: Male
  Weight: 84.444 kg

DRUGS (4)
  1. HYTRIN [Suspect]
     Indication: BLADDER DISORDER
     Route: 048
     Dates: start: 19990101, end: 20020101
  2. HYTRIN [Suspect]
     Indication: BENIGN PROSTATIC HYPERPLASIA
  3. DILTIAZEM HYDROCHLORIDE [Suspect]
     Indication: CARDIAC DISORDER
     Route: 048
     Dates: start: 19990101, end: 20020101
  4. CARTIA XT [Concomitant]
     Route: 048
     Dates: start: 20020101

REACTIONS (2)
  - BLADDER DISORDER [None]
  - BLOOD PRESSURE INCREASED [None]
